FAERS Safety Report 5710252-3 (Version None)
Quarter: 2008Q2

REPORT INFORMATION
  Report Type: 
  Country: None (occurrence: None)
  Receive Date: 20080418
  Receipt Date: 20080416
  Transmission Date: 20081010
  Serious: Yes (Death, Hospitalization)
  Sender: FDA-Public Use
  Company Number: SG-BOEHRINGER INGELHEIM GMBH, GERMANY-2008-DE-02285GD

PATIENT
  Age: 51 Year
  Sex: Female

DRUGS (2)
  1. MORPHINE [Suspect]
     Indication: CANCER PAIN
     Route: 048
  2. MORPHINE [Suspect]
     Dosage: ESCALATED INCREMENTALLY TO 10 MG
     Route: 042

REACTIONS (5)
  - ABDOMINAL PAIN [None]
  - MYOCARDIAL INFARCTION [None]
  - NAUSEA [None]
  - PNEUMONIA [None]
  - VOMITING [None]
